FAERS Safety Report 11539289 (Version 1)
Quarter: 2015Q3

REPORT INFORMATION
  Report Type: Spontaneous
  Country: US (occurrence: US)
  Receive Date: 20150923
  Receipt Date: 20150923
  Transmission Date: 20151125
  Serious: No
  Sender: FDA-Public Use
  Company Number: US-PFIZER INC-2015307069

PATIENT
  Age: 82 Year
  Sex: Male
  Weight: 81 kg

DRUGS (1)
  1. LYRICA [Suspect]
     Active Substance: PREGABALIN
     Indication: PAIN IN EXTREMITY
     Dosage: 50 MG, 3X/DAY
     Route: 048
     Dates: start: 20150827

REACTIONS (4)
  - Laceration [Recovered/Resolved]
  - Hypersomnia [Unknown]
  - Memory impairment [Unknown]
  - Product packaging issue [Recovered/Resolved]

NARRATIVE: CASE EVENT DATE: 2015
